FAERS Safety Report 7746639-7 (Version None)
Quarter: 2011Q3

REPORT INFORMATION
  Report Type: 
  Country: None (occurrence: None)
  Receive Date: 20110825
  Receipt Date: 20110524
  Transmission Date: 20111222
  Serious: No
  Sender: FDA-Public Use
  Company Number: 328793

PATIENT
  Age: 64 Year
  Sex: Female

DRUGS (3)
  1. VICTOZA [Suspect]
     Indication: TYPE 2 DIABETES MELLITUS
     Dosage: SUBCUTANEOUS ; SUBCUTANEOUS
     Route: 058
     Dates: start: 20110401, end: 20110501
  2. VICTOZA [Suspect]
     Indication: TYPE 2 DIABETES MELLITUS
     Dosage: SUBCUTANEOUS ; SUBCUTANEOUS
     Route: 058
     Dates: start: 20110519
  3. LANTUS [Concomitant]

REACTIONS (1)
  - DYSGEUSIA [None]
